FAERS Safety Report 11409144 (Version 1)
Quarter: 2015Q3

REPORT INFORMATION
  Report Type: Spontaneous
  Country: FR (occurrence: FR)
  Receive Date: 20150824
  Receipt Date: 20150824
  Transmission Date: 20151125
  Serious: Yes (Disabling, Other)
  Sender: FDA-Public Use
  Company Number: FR-ALEMBIC PHARMACUETICALS LIMITED-2015SCAL000496

PATIENT
  Age: 47 Year
  Sex: Female

DRUGS (5)
  1. HALOPERIDOL. [Suspect]
     Active Substance: HALOPERIDOL
     Indication: SCHIZOPHRENIA
     Dosage: 1 MG, QD (CUMULATIVE DOSE OF 60 G)
  2. ARIPIPRAZOLE. [Suspect]
     Active Substance: ARIPIPRAZOLE
     Indication: SCHIZOPHRENIA
     Dosage: 10 MG, QD
  3. ARIPIPRAZOLE. [Suspect]
     Active Substance: ARIPIPRAZOLE
     Dosage: 10 MG, QD (CUMULATIVE DOSE OF 200 G)
  4. ARIPIPRAZOLE. [Suspect]
     Active Substance: ARIPIPRAZOLE
     Dosage: 5 MG, QD
  5. ARIPIPRAZOLE. [Suspect]
     Active Substance: ARIPIPRAZOLE
     Dosage: 15 MG, QD

REACTIONS (4)
  - Chorioretinopathy [Recovered/Resolved]
  - Retinal detachment [Recovered/Resolved]
  - Blindness [Recovered/Resolved]
  - Retinal degeneration [Recovered/Resolved]
